FAERS Safety Report 23406508 (Version 2)
Quarter: 2024Q1

REPORT INFORMATION
  Report Type: Spontaneous
  Country: US (occurrence: US)
  Receive Date: 20240116
  Receipt Date: 20240125
  Transmission Date: 20240410
  Serious: Yes (Other)
  Sender: FDA-Public Use
  Company Number: US-PFIZER INC-202300237588

PATIENT
  Age: 46 Year
  Sex: Female

DRUGS (1)
  1. XELJANZ XR [Suspect]
     Active Substance: TOFACITINIB CITRATE
     Dosage: 11 MG

REACTIONS (6)
  - Sjogren^s syndrome [Unknown]
  - Autoimmune disorder [Unknown]
  - Migraine [Unknown]
  - Poor quality product administered [Unknown]
  - Product storage error [Unknown]
  - Inappropriate schedule of product administration [Unknown]
